APPROVED DRUG PRODUCT: CLOBETASOL PROPIONATE
Active Ingredient: CLOBETASOL PROPIONATE
Strength: 0.05%
Dosage Form/Route: SHAMPOO;TOPICAL
Application: A078854 | Product #001
Applicant: ACTAVIS MID ATLANTIC LLC
Approved: Jun 7, 2011 | RLD: No | RS: No | Type: DISCN